FAERS Safety Report 18269320 (Version 1)
Quarter: 2020Q3

REPORT INFORMATION
  Report Type: Spontaneous
  Country: FR (occurrence: FR)
  Receive Date: 20200915
  Receipt Date: 20200915
  Transmission Date: 20201103
  Serious: Yes (Other)
  Sender: FDA-Public Use
  Company Number: FR-JAZZ-2020-FR-004388

PATIENT

DRUGS (19)
  1. KIDROLASE [Suspect]
     Active Substance: ASPARAGINASE
     Indication: LEUKAEMIA
     Dosage: 11900 INTERNATIONAL UNIT, QD
     Route: 042
  2. ONDANSETRON ACCORD [Suspect]
     Active Substance: ONDANSETRON
     Indication: PROPHYLAXIS OF NAUSEA AND VOMITING
     Dosage: 8 MILLIGRAM, 1 IN TOTAL
     Route: 042
     Dates: start: 20191219, end: 20191219
  3. CYTARABINE. [Suspect]
     Active Substance: CYTARABINE
     Indication: LEUKAEMIA
     Dosage: 5940 MILLIGRAM, 1 IN TOTAL
     Route: 042
     Dates: start: 20191219, end: 20191219
  4. SKENAN [Concomitant]
     Active Substance: MORPHINE SULFATE
     Dosage: ()
  5. UROREC [Concomitant]
     Active Substance: SILODOSIN
     Indication: PRODUCT USED FOR UNKNOWN INDICATION
     Dosage: UNK
  6. LYRICA [Concomitant]
     Active Substance: PREGABALIN
     Indication: PRODUCT USED FOR UNKNOWN INDICATION
     Dosage: ()
  7. METHOTREXATE BIODIM [Suspect]
     Active Substance: METHOTREXATE
     Dosage: 40 MILLIGRAM, 1 IN TOTAL
     Route: 037
     Dates: start: 20191219, end: 20191219
  8. THEOSTAT [Concomitant]
     Active Substance: THEOPHYLLINE ANHYDROUS
     Indication: PRODUCT USED FOR UNKNOWN INDICATION
     Dosage: ()
  9. NISIS [Concomitant]
     Active Substance: VALSARTAN
     Indication: PRODUCT USED FOR UNKNOWN INDICATION
     Dosage: ()
  10. METHOTREXATE BIODIM [Suspect]
     Active Substance: METHOTREXATE
     Indication: LEUKAEMIA
     Dosage: 5940 MILLIGRAM, 1 IN TOTAL
     Route: 042
     Dates: start: 20191219, end: 20191219
  11. PARACETAMOL [Concomitant]
     Active Substance: ACETAMINOPHEN
     Indication: PRODUCT USED FOR UNKNOWN INDICATION
     Dosage: ()
  12. DEPO?MEDROL [Suspect]
     Active Substance: METHYLPREDNISOLONE ACETATE
     Indication: LEUKAEMIA
     Dosage: 40 MILLIGRAM, 1 TOTAL
     Route: 037
     Dates: start: 20191219, end: 20191219
  13. METHOTREXATE MYLAN [Suspect]
     Active Substance: METHOTREXATE SODIUM
     Indication: LEUKAEMIA
     Dosage: 5940 MILLIGRAM, 1 IN TOTAL
     Route: 042
     Dates: start: 20191219, end: 20191219
  14. CYTARABINE. [Suspect]
     Active Substance: CYTARABINE
     Dosage: 15 MILLIGRAM, 1 IN TOTAL
     Route: 037
     Dates: start: 20191219, end: 20191219
  15. ONDANSETRON ACCORD [Suspect]
     Active Substance: ONDANSETRON
     Dosage: 5940 MILLIGRAM, 1 IN TOTAL
     Route: 042
     Dates: start: 20191219, end: 20191219
  16. FORADIL [Concomitant]
     Active Substance: FORMOTEROL FUMARATE
     Indication: PRODUCT USED FOR UNKNOWN INDICATION
     Dosage: ()
  17. ZAVEDOS [Suspect]
     Active Substance: IDARUBICIN
     Indication: LEUKAEMIA
     Dosage: 24 MILLIGRAM, 1 IN TOTAL
     Route: 042
     Dates: start: 20191219, end: 20191219
  18. ACTISKENAN [Concomitant]
     Active Substance: MORPHINE SULFATE
     Dosage: ()
  19. PANTOPRAZOLE [Concomitant]
     Active Substance: PANTOPRAZOLE
     Indication: PRODUCT USED FOR UNKNOWN INDICATION
     Dosage: ()

REACTIONS (2)
  - Cholestasis [Recovered/Resolved]
  - Hepatocellular injury [Recovered/Resolved]

NARRATIVE: CASE EVENT DATE: 20191226
